FAERS Safety Report 9163237 (Version 1)
Quarter: 2013Q1

REPORT INFORMATION
  Report Type: Report from Study
  Country: CA (occurrence: CA)
  Receive Date: 20130314
  Receipt Date: 20130314
  Transmission Date: 20140127
  Serious: Yes (Hospitalization, Other)
  Sender: FDA-Public Use
  Company Number: CA-JNJFOC-20130300647

PATIENT
  Age: 41 Year
  Sex: Female
  Weight: 90 kg

DRUGS (12)
  1. REMICADE [Suspect]
     Indication: CROHN^S DISEASE
     Dosage: 32 ND INFUSION
     Route: 042
     Dates: start: 20130116
  2. REMICADE [Suspect]
     Indication: CROHN^S DISEASE
     Route: 042
     Dates: start: 20090713
  3. REMICADE [Suspect]
     Indication: CROHN^S DISEASE
     Dosage: 32ND INFUSION
     Route: 042
     Dates: start: 20130228
  4. TYLENOL [Concomitant]
     Indication: PREMEDICATION
     Route: 065
  5. LITHIUM [Concomitant]
     Indication: DEPRESSION
     Route: 065
  6. BUPROPION [Concomitant]
     Indication: DEPRESSION
     Route: 065
  7. PREDNISONE [Concomitant]
     Indication: PSORIATIC ARTHROPATHY
     Route: 065
  8. DEMEROL [Concomitant]
     Indication: PREMEDICATION
     Route: 065
  9. GRAVOL [Concomitant]
     Indication: PREMEDICATION
     Route: 065
  10. ZOPICLONE [Concomitant]
     Indication: SLEEP DISORDER
     Route: 065
  11. AXERT [Concomitant]
     Indication: MIGRAINE
     Route: 065
  12. BENADRYL [Concomitant]
     Indication: PREMEDICATION
     Route: 042

REACTIONS (3)
  - Ovarian cyst [Recovering/Resolving]
  - Infusion related reaction [Recovered/Resolved]
  - Gastric haemorrhage [Unknown]
